FAERS Safety Report 5564094-2 (Version None)
Quarter: 2007Q4

REPORT INFORMATION
  Report Type: 
  Country: None (occurrence: None)
  Receive Date: 20071217
  Receipt Date: 20071205
  Transmission Date: 20080405
  Serious: Yes (Other)
  Sender: FDA-Public Use
  Company Number: US-PFIZER INC-2007088778

PATIENT
  Sex: Male
  Weight: 34 kg

DRUGS (8)
  1. CORTEF [Suspect]
     Dosage: DAILY DOSE:7.5MG-TEXT:5 MG IN THE AM, 2.5 MG IN THE EVENING
     Route: 048
  2. SAIZEN [Suspect]
     Indication: GROWTH HORMONE DEFICIENCY
     Route: 058
  3. IMURAN [Suspect]
     Route: 048
  4. PROGRAF [Suspect]
     Route: 048
  5. PREDNISONE [Concomitant]
     Route: 048
  6. VFEND [Concomitant]
     Route: 048
  7. ACYCLOVIR [Concomitant]
     Route: 048
  8. LEVAQUIN [Concomitant]
     Route: 048

REACTIONS (1)
  - SQUAMOUS CELL CARCINOMA [None]
